FAERS Safety Report 23883861 (Version 1)
Quarter: 2024Q2

REPORT INFORMATION
  Report Type: Spontaneous
  Country: US (occurrence: US)
  Receive Date: 20240522
  Receipt Date: 20240522
  Transmission Date: 20240716
  Serious: Yes (Hospitalization, Other)
  Sender: FDA-Public Use
  Company Number: US-Accord-425669

PATIENT
  Age: 70 Year
  Sex: Male

DRUGS (6)
  1. FLUOROURACIL [Suspect]
     Active Substance: FLUOROURACIL
     Indication: Metastatic squamous cell carcinoma
     Dosage: 750 MG/M2 FOR FOUR DOSES
  2. DOCETAXEL [Concomitant]
     Active Substance: DOCETAXEL\DOCETAXEL ANHYDROUS
     Indication: Metastatic squamous cell carcinoma
  3. CARBOPLATIN [Concomitant]
     Active Substance: CARBOPLATIN
     Indication: Metastatic squamous cell carcinoma
  4. FLUOROURACIL [Suspect]
     Active Substance: FLUOROURACIL
     Indication: Squamous cell carcinoma of the tongue
     Dosage: 750 MG/M2 FOR FOUR DOSES
  5. DOCETAXEL [Concomitant]
     Active Substance: DOCETAXEL\DOCETAXEL ANHYDROUS
     Indication: Squamous cell carcinoma of the tongue
  6. CARBOPLATIN [Concomitant]
     Active Substance: CARBOPLATIN
     Indication: Squamous cell carcinoma of the tongue

REACTIONS (3)
  - Encephalopathy [Recovering/Resolving]
  - Febrile neutropenia [Recovering/Resolving]
  - Pneumatosis intestinalis [Recovering/Resolving]
